FAERS Safety Report 4698966-8 (Version None)
Quarter: 2005Q2

REPORT INFORMATION
  Report Type: 
  Country: None (occurrence: None)
  Receive Date: 20050622
  Receipt Date: 20050622
  Transmission Date: 20051028
  Serious: Yes (Hospitalization)
  Sender: FDA-Public Use
  Company Number: None

PATIENT
  Age: 50 Year
  Sex: Female
  Weight: 167 kg

DRUGS (2)
  1. OXYCONDONE CR 10 MG [Suspect]
     Indication: PAIN
     Dosage: 10 MG BID ORAL
     Route: 048
  2. FENTANYL 75 MCG [Suspect]
     Indication: PAIN
     Dosage: 75 MCG Q3DAYS TOPICAL
     Route: 061

REACTIONS (2)
  - ILEUS [None]
  - SMALL INTESTINAL OBSTRUCTION [None]
